FAERS Safety Report 13102055 (Version 2)
Quarter: 2017Q1

REPORT INFORMATION
  Report Type: Spontaneous
  Country: US (occurrence: US)
  Receive Date: 20170110
  Receipt Date: 20170125
  Transmission Date: 20170428
  Serious: Yes (Other)
  Sender: FDA-Public Use
  Company Number: US-BAYER-2017-004884

PATIENT
  Age: 31 Year
  Sex: Female
  Weight: 119.73 kg

DRUGS (1)
  1. MIRENA [Suspect]
     Active Substance: LEVONORGESTREL
     Indication: CONTRACEPTION
     Dosage: 20 MCG/24HR, CONT
     Route: 015
     Dates: start: 20161107, end: 20161206

REACTIONS (2)
  - Menstruation irregular [None]
  - Device dislocation [Recovering/Resolving]

NARRATIVE: CASE EVENT DATE: 2016
